FAERS Safety Report 8392533-0 (Version None)
Quarter: 2012Q2

REPORT INFORMATION
  Report Type: 
  Country: None (occurrence: None)
  Receive Date: 20120529
  Receipt Date: 20120518
  Transmission Date: 20120825
  Serious: Yes (Other)
  Sender: FDA-Public Use
  Company Number: GB-MERCK-1204USA01876

PATIENT
  Age: 48 Year
  Sex: Female
  Weight: 70 kg

DRUGS (11)
  1. DOMPERIDONE [Suspect]
     Route: 048
  2. RANITIDINE [Suspect]
     Route: 042
  3. DECADRON PHOSPHATE [Suspect]
     Route: 042
  4. DOCUSATE SODIUM [Concomitant]
     Route: 048
  5. PACLITAXEL [Suspect]
     Route: 042
     Dates: start: 20110524, end: 20110705
  6. PEGFILGRASTIM [Suspect]
     Route: 058
  7. GRANISETRON [Suspect]
     Route: 048
  8. DECADRON [Suspect]
     Route: 048
  9. CHLORPHENIRAMINE MALEATE [Suspect]
     Indication: PRODUCT USED FOR UNKNOWN INDICATION
     Route: 042
  10. BIOTENE [Concomitant]
     Route: 065
  11. PACLITAXEL [Suspect]
     Indication: BREAST CANCER
     Route: 042
     Dates: end: 20110705

REACTIONS (5)
  - FATIGUE [None]
  - DYSPNOEA [None]
  - CHEST PAIN [None]
  - CHEST DISCOMFORT [None]
  - RESPIRATORY DEPTH DECREASED [None]
